FAERS Safety Report 7454378-5 (Version None)
Quarter: 2011Q2

REPORT INFORMATION
  Report Type: 
  Country: None (occurrence: None)
  Receive Date: 20110503
  Receipt Date: 20110428
  Transmission Date: 20111010
  Serious: Yes (Other)
  Sender: FDA-Public Use
  Company Number: US-JNJFOC-20100502445

PATIENT
  Sex: Male
  Weight: 9.07 kg

DRUGS (4)
  1. CONCENTRATED TYLENOL INFANT DROPS [Suspect]
     Route: 048
  2. CONCENTRATED TYLENOL INFANT DROPS [Suspect]
     Indication: PYREXIA
     Route: 048
  3. CONCENTRATED MOTRIN INFANTS DROPS [Suspect]
     Route: 048
  4. CONCENTRATED MOTRIN INFANTS DROPS [Suspect]
     Indication: PYREXIA
     Route: 048

REACTIONS (11)
  - PRODUCT CONTAMINATION PHYSICAL [None]
  - MONOCYTE PERCENTAGE INCREASED [None]
  - BLOOD POTASSIUM INCREASED [None]
  - LYMPHOCYTE PERCENTAGE DECREASED [None]
  - PRODUCT MEASURED POTENCY ISSUE [None]
  - EXANTHEMA SUBITUM [None]
  - BLOOD SODIUM DECREASED [None]
  - BLOOD GLUCOSE INCREASED [None]
  - WHITE BLOOD CELL COUNT DECREASED [None]
  - BAND NEUTROPHIL COUNT INCREASED [None]
  - PRODUCT QUALITY ISSUE [None]
